FAERS Safety Report 15425210 (Version 1)
Quarter: 2018Q3

REPORT INFORMATION
  Report Type: Spontaneous
  Country: US (occurrence: US)
  Receive Date: 20180925
  Receipt Date: 20180925
  Transmission Date: 20181010
  Serious: No
  Sender: FDA-Public Use
  Company Number: US-BIOVITRUM-2018US0445

PATIENT
  Sex: Male
  Weight: 3.52 kg

DRUGS (2)
  1. PREDNISONE. [Concomitant]
     Active Substance: PREDNISONE
     Dosage: TAPER 30 MG DOWN TO 5 MG DAILY FROM 3 TO 11.7 WEEKS
     Route: 064
  2. ANAKINRA [Suspect]
     Active Substance: ANAKINRA
     Indication: STILL^S DISEASE
     Dosage: PRECONCEPTION?2.0 WEEKS AND 9.6?36.7 WEEKS AND DURING BREAST FEEDING
     Route: 064

REACTIONS (3)
  - Ankyloglossia congenital [Unknown]
  - Foetal exposure during pregnancy [Recovered/Resolved]
  - Exposure via breast milk [Unknown]
